FAERS Safety Report 4294507-8 (Version None)
Quarter: 2004Q1

REPORT INFORMATION
  Report Type: 
  Country: None (occurrence: None)
  Receive Date: 20040211
  Receipt Date: 20040130
  Transmission Date: 20041129
  Serious: Yes (Life-Threatening, Hospitalization)
  Sender: FDA-Public Use
  Company Number: DE_040112844

PATIENT
  Age: 32 Year
  Sex: Female
  Weight: 92 kg

DRUGS (2)
  1. ZYPREXA [Suspect]
     Indication: ABNORMAL BEHAVIOUR
     Dosage: 5 MG/DAY
     Dates: start: 20031223, end: 20040111
  2. ZYPREXA [Suspect]
     Indication: DEPRESSION
     Dosage: 5 MG/DAY
     Dates: start: 20031223, end: 20040111

REACTIONS (8)
  - ABDOMINAL PAIN UPPER [None]
  - ALANINE AMINOTRANSFERASE INCREASED [None]
  - BLOOD ALKALINE PHOSPHATASE INCREASED [None]
  - BLOOD BILIRUBIN INCREASED [None]
  - CHOLELITHIASIS [None]
  - EXANTHEM [None]
  - HEPATIC STEATOSIS [None]
  - HEPATITIS TOXIC [None]
